FAERS Safety Report 5550982-X (Version None)
Quarter: 2007Q4

REPORT INFORMATION
  Report Type: 
  Country: None (occurrence: None)
  Receive Date: 20071212
  Receipt Date: 20071205
  Transmission Date: 20080405
  Serious: Yes (Hospitalization, Other)
  Sender: FDA-Public Use
  Company Number: JP-MERCK-0711USA03526

PATIENT
  Age: 68 Year
  Sex: Female

DRUGS (12)
  1. FOSAMAX [Suspect]
     Indication: OSTEOPOROSIS
     Route: 048
     Dates: start: 20041112, end: 20070711
  2. METHOTREXATE [Concomitant]
     Route: 048
     Dates: start: 20040301, end: 20070101
  3. NOVOLIN R [Concomitant]
     Indication: DIABETES MELLITUS
     Route: 058
     Dates: start: 20070101, end: 20070201
  4. ENBREL [Concomitant]
     Route: 058
     Dates: start: 20060601, end: 20070101
  5. PREDONINE [Concomitant]
     Indication: RHEUMATOID ARTHRITIS
     Route: 048
     Dates: start: 20061121, end: 20070418
  6. PREDONINE [Concomitant]
     Route: 048
     Dates: start: 20070419, end: 20070517
  7. PREDONINE [Concomitant]
     Route: 048
     Dates: start: 20070517, end: 20070801
  8. PREDONINE [Concomitant]
     Route: 048
     Dates: start: 20070901, end: 20070901
  9. PREDONINE [Concomitant]
     Route: 048
     Dates: start: 20071010
  10. INNOLET N [Concomitant]
     Route: 058
     Dates: start: 20070201
  11. FOLIAMIN [Concomitant]
     Route: 048
     Dates: start: 20040301, end: 20070101
  12. MOBIC [Concomitant]
     Route: 048
     Dates: start: 20060101, end: 20060901

REACTIONS (3)
  - DIABETES MELLITUS [None]
  - DYSGEUSIA [None]
  - PALATAL DISORDER [None]
